FAERS Safety Report 6459266-9 (Version None)
Quarter: 2009Q4

REPORT INFORMATION
  Report Type: 
  Country: None (occurrence: None)
  Receive Date: 20091127
  Receipt Date: 20090805
  Transmission Date: 20100525
  Serious: No
  Sender: FDA-Public Use
  Company Number: US-AMGEN-KDL358948

PATIENT
  Sex: Male
  Weight: 35 kg

DRUGS (8)
  1. ENBREL [Suspect]
     Indication: JUVENILE ARTHRITIS
     Route: 058
     Dates: start: 20090626
  2. METHOTREXATE [Concomitant]
  3. CELEBREX [Concomitant]
  4. PREVACID [Concomitant]
  5. ZANTAC [Concomitant]
  6. ZYRTEC [Concomitant]
  7. FOLIC ACID [Concomitant]
  8. CONCERTA [Concomitant]

REACTIONS (1)
  - NAUSEA [None]
